FAERS Safety Report 6073122-X (Version None)
Quarter: 2009Q1

REPORT INFORMATION
  Report Type: 
  Country: None (occurrence: None)
  Receive Date: 20090211
  Receipt Date: 20090130
  Transmission Date: 20090719
  Serious: Yes (Hospitalization)
  Sender: FDA-Public Use
  Company Number: US-JNJFOC-20090200267

PATIENT
  Age: 65 Year
  Sex: Male
  Weight: 90.72 kg

DRUGS (4)
  1. REMICADE [Suspect]
     Dosage: 3RD INFUSION
     Route: 042
  2. REMICADE [Suspect]
     Indication: RHEUMATOID ARTHRITIS
     Dosage: INFUSIONS 1 + 2
     Route: 042
  3. FISH OIL [Concomitant]
  4. CONDROITIN [Concomitant]

REACTIONS (6)
  - DEHYDRATION [None]
  - FALL [None]
  - FATIGUE [None]
  - INFECTION [None]
  - PYREXIA [None]
  - VOMITING [None]
